FAERS Safety Report 7620743-6 (Version None)
Quarter: 2011Q3

REPORT INFORMATION
  Report Type: 
  Country: None (occurrence: None)
  Receive Date: 20110719
  Receipt Date: 20110715
  Transmission Date: 20111222
  Serious: Yes (Death)
  Sender: FDA-Public Use
  Company Number: GB-GLAXOSMITHKLINE-B0733794A

PATIENT
  Sex: Female

DRUGS (7)
  1. OXYCODONE HCL [Concomitant]
     Indication: ANALGESIC THERAPY
  2. DOCETAXEL [Suspect]
     Indication: BREAST CANCER METASTATIC
     Dosage: 75MGM2 EVERY 3 WEEKS
     Route: 042
     Dates: start: 20110708, end: 20110708
  3. ESCITALOPRAM [Concomitant]
     Indication: DEPRESSION
  4. ZOPICLONE [Concomitant]
     Indication: INSOMNIA
  5. LANSOPRAZOLE [Concomitant]
  6. LAPATINIB [Suspect]
     Indication: BREAST CANCER METASTATIC
     Dosage: 1250MG PER DAY
     Route: 048
     Dates: start: 20110708
  7. MOTILIUM [Concomitant]
     Indication: NAUSEA

REACTIONS (4)
  - VOMITING [None]
  - NEUTROPENIA [None]
  - DEATH [None]
  - ABDOMINAL DISTENSION [None]
